FAERS Safety Report 25090820 (Version 3)
Quarter: 2025Q2

REPORT INFORMATION
  Report Type: Report from Study
  Country: US (occurrence: US)
  Receive Date: 20250318
  Receipt Date: 20250506
  Transmission Date: 20250717
  Serious: Yes (Hospitalization)
  Sender: ABBVIE
  Company Number: US-ABBVIE-6175976

PATIENT
  Age: 72 Year
  Sex: Male

DRUGS (1)
  1. SKYRIZI [Suspect]
     Active Substance: RISANKIZUMAB-RZAA
     Indication: Crohn^s disease
     Route: 058
     Dates: start: 20240926

REACTIONS (4)
  - Oesophageal ulcer [Recovering/Resolving]
  - Norovirus infection [Recovered/Resolved]
  - Nausea [Unknown]
  - Haematemesis [Recovering/Resolving]

NARRATIVE: CASE EVENT DATE: 20250301
